FAERS Safety Report 23271136 (Version 1)
Quarter: 2023Q4

REPORT INFORMATION
  Report Type: Spontaneous
  Country: US (occurrence: US)
  Receive Date: 20231207
  Receipt Date: 20231207
  Transmission Date: 20240110
  Serious: No
  Sender: FDA-Public Use
  Company Number: US-CURIUM-2023000741

PATIENT

DRUGS (1)
  1. IOFLUPANE I-123 [Suspect]
     Active Substance: IOFLUPANE I-123
     Indication: Radioisotope scan
     Route: 065
     Dates: start: 20230913, end: 20230913

REACTIONS (1)
  - Radioisotope scan abnormal [Recovered/Resolved]
